FAERS Safety Report 7402751-3 (Version None)
Quarter: 2011Q1

REPORT INFORMATION
  Report Type: 
  Country: None (occurrence: None)
  Receive Date: 20110330
  Receipt Date: 20110320
  Transmission Date: 20110831
  Serious: Yes (Hospitalization)
  Sender: FDA-Public Use
  Company Number: 552649

PATIENT
  Age: 60 Year
  Sex: Male

DRUGS (12)
  1. VINCRISTINE [Suspect]
     Dosage: 2 MG , INTRAVENOUS
     Route: 042
     Dates: start: 20091130
  2. (ENDOXAN /00021101/) [Suspect]
     Dosage: 2200 MG, INTRAVENOUS
     Route: 042
     Dates: start: 20091130
  3. DOXORUBICIN HCL [Suspect]
     Dosage: 135 MG, INTRAVENOUS
     Route: 042
     Dates: start: 20091130
  4. METHOTREXATE [Suspect]
     Indication: PRODUCT USED FOR UNKNOWN INDICATION
     Dosage: 12 MG, INTRATHECAL
     Route: 037
     Dates: start: 20091129
  5. (DELTACORTENE) [Concomitant]
  6. (URBASON /00049601/) [Concomitant]
  7. BACTRIM [Concomitant]
  8. (CONCOR /00802602/) [Concomitant]
  9. (UROMITEXAN) [Concomitant]
  10. (ZYLORIC /00003301/) [Concomitant]
  11. NEULASTA [Concomitant]
  12. (KARVEA) [Concomitant]

REACTIONS (2)
  - STOMATITIS [None]
  - PARAESTHESIA [None]
